FAERS Safety Report 7738214-5 (Version None)
Quarter: 2011Q3

REPORT INFORMATION
  Report Type: 
  Country: None (occurrence: None)
  Receive Date: 20110906
  Receipt Date: 20110822
  Transmission Date: 20111222
  Serious: Yes (Other)
  Sender: FDA-Public Use
  Company Number: 1000023232

PATIENT

DRUGS (1)
  1. CERVIDIL (DINOPROSTONE) (VAGINAL INSERT) [Suspect]
     Dosage: 10 MG, ONCE, TRANSPLACENTAL
     Route: 064
     Dates: start: 20110811, end: 20110801

REACTIONS (4)
  - CAESAREAN SECTION [None]
  - MATERNAL DRUGS AFFECTING FOETUS [None]
  - HYPOXIC-ISCHAEMIC ENCEPHALOPATHY [None]
  - BRADYCARDIA FOETAL [None]
